FAERS Safety Report 5806461-5 (Version None)
Quarter: 2008Q3

REPORT INFORMATION
  Report Type: 
  Country: None (occurrence: None)
  Receive Date: 20080710
  Receipt Date: 20080702
  Transmission Date: 20090109
  Serious: Yes (Other)
  Sender: FDA-Public Use
  Company Number: US-ELI_LILLY_AND_COMPANY-US200807000688

PATIENT
  Age: 77 Year
  Sex: Female

DRUGS (4)
  1. EVISTA [Suspect]
     Indication: PROPHYLAXIS
     Dosage: 60 MG, DAILY (1/D)
     Dates: start: 19970101
  2. LIPITOR [Concomitant]
  3. ALBUTEROL [Concomitant]
  4. CAPTOPRIL [Concomitant]

REACTIONS (3)
  - DRY EYE [None]
  - LACRIMATION INCREASED [None]
  - MACULAR DEGENERATION [None]
